FAERS Safety Report 7086461-0 (Version None)
Quarter: 2010Q4

REPORT INFORMATION
  Report Type: 
  Country: None (occurrence: None)
  Receive Date: 20101105
  Receipt Date: 20101001
  Transmission Date: 20110411
  Serious: Yes (Hospitalization)
  Sender: FDA-Public Use
  Company Number: JP-WYE-H14414510

PATIENT
  Age: 81 Year
  Sex: Male

DRUGS (1)
  1. ZOSYN [Suspect]
     Dosage: 18 G DAILY
     Route: 041
     Dates: start: 20100226, end: 20100307

REACTIONS (1)
  - CHOLESTASIS [None]
